FAERS Safety Report 9869843 (Version 2)
Quarter: 2014Q1

REPORT INFORMATION
  Report Type: Spontaneous
  Country: US (occurrence: US)
  Receive Date: 20140205
  Receipt Date: 20140219
  Transmission Date: 20141002
  Serious: Yes (Hospitalization)
  Sender: FDA-Public Use
  Company Number: US-BEH-2014040409

PATIENT
  Sex: Male

DRUGS (2)
  1. ZEMAIRA [Suspect]
     Indication: WALDENSTROM^S MACROGLOBULINAEMIA
  2. ZEMAIRA [Suspect]
     Indication: WALDENSTROM^S MACROGLOBULINAEMIA

REACTIONS (2)
  - Cardiac operation [Recovered/Resolved]
  - Pneumonia [Recovered/Resolved]
